FAERS Safety Report 14518380 (Version 2)
Quarter: 2018Q1

REPORT INFORMATION
  Report Type: Spontaneous
  Country: DE (occurrence: DE)
  Receive Date: 20180212
  Receipt Date: 20180214
  Transmission Date: 20180509
  Serious: Yes (Other)
  Sender: FDA-Public Use
  Company Number: DE-PFIZER INC-2018055928

PATIENT
  Age: 69 Year
  Sex: Male
  Weight: 60 kg

DRUGS (11)
  1. HEPARIN-NATRIUM [Suspect]
     Active Substance: HEPARIN SODIUM
     Dosage: 4000 IU, DAILY
     Dates: start: 20170830, end: 20170830
  2. ASPIRIN. [Concomitant]
     Active Substance: ASPIRIN
     Dosage: 100 MILLIGRAM DAILY; 0-1-0
  3. ATORVASTATIN [Concomitant]
     Active Substance: ATORVASTATIN
     Dosage: 40 MILLIGRAM DAILY; 0-0-1
  4. TRANEXAMIC ACID. [Suspect]
     Active Substance: TRANEXAMIC ACID
     Dosage: 10 ML, UNK
     Dates: start: 20170830, end: 20170830
  5. BISOPROLOL [Concomitant]
     Active Substance: BISOPROLOL
     Dosage: 2 SEPERATED DOSES DAILY DOSE: 80 MG MILLIGRAM(S) EVERY DAY
  6. PANTOPRAZOL [Concomitant]
     Active Substance: PANTOPRAZOLE SODIUM
     Dosage: 80 MILLIGRAM DAILY; 1-0-1
  7. HEPARIN-NATRIUM [Suspect]
     Active Substance: HEPARIN SODIUM
     Dosage: UNK
  8. BISOPROLOL [Concomitant]
     Active Substance: BISOPROLOL
     Dosage: 2.5 MILLIGRAM DAILY; 1-0-0
  9. FERRO SANOL [Concomitant]
     Active Substance: FERROUS GLYCINE SULFATE
     Dosage: 200 MILLIGRAM DAILY; 1-1-0
  10. DESMOPRESSIN [Concomitant]
     Active Substance: DESMOPRESSIN
  11. HEPARIN-NATRIUM [Suspect]
     Active Substance: HEPARIN SODIUM
     Dosage: UNK

REACTIONS (5)
  - Haemoglobin increased [Recovered/Resolved]
  - Post procedural complication [None]
  - Blood pressure decreased [Unknown]
  - Vasodilatation [Recovered/Resolved]
  - Renal failure [Unknown]

NARRATIVE: CASE EVENT DATE: 20170830
